FAERS Safety Report 20551328 (Version 2)
Quarter: 2022Q2

REPORT INFORMATION
  Report Type: Report from Study
  Country: US (occurrence: US)
  Receive Date: 20220304
  Receipt Date: 20220506
  Transmission Date: 20220721
  Serious: Yes (Hospitalization, Other)
  Sender: FDA-Public Use
  Company Number: US-NOVOPROD-896038

PATIENT
  Age: 44 Year
  Sex: Male

DRUGS (4)
  1. NOVOLOG [Suspect]
     Active Substance: INSULIN ASPART
     Indication: Type 2 diabetes mellitus
     Dosage: 150 IU INTERNATIONAL UNIT(S), QD (150 IU QD (50 IU WITH MEALS)
     Route: 058
  2. OZEMPIC [Suspect]
     Active Substance: SEMAGLUTIDE
     Indication: Type 2 diabetes mellitus
     Dosage: UNK
     Route: 058
  3. TRESIBA [Suspect]
     Active Substance: INSULIN DEGLUDEC
     Indication: Type 2 diabetes mellitus
     Dosage: 160 IU, QD
     Route: 058
  4. LIRAGLUTIDE [Suspect]
     Active Substance: LIRAGLUTIDE
     Indication: Type 2 diabetes mellitus
     Dosage: UNK
     Route: 058

REACTIONS (14)
  - Treatment noncompliance [Unknown]
  - Diabetic retinopathy [Unknown]
  - Diabetes mellitus inadequate control [Unknown]
  - Dyslipidaemia [Unknown]
  - Essential hypertension [Unknown]
  - Arteriosclerosis coronary artery [Unknown]
  - Cardiac failure congestive [Unknown]
  - Cardiac failure chronic [Unknown]
  - Diabetic neuropathy [Unknown]
  - Obesity [Unknown]
  - Cataract [Unknown]
  - Chronic kidney disease [Unknown]
  - Cellulitis [Unknown]
  - Diabetic foot infection [Unknown]

NARRATIVE: CASE EVENT DATE: 20220215
